FAERS Safety Report 25674127 (Version 1)
Quarter: 2025Q3

REPORT INFORMATION
  Report Type: Spontaneous
  Country: EU (occurrence: EU)
  Receive Date: 20250813
  Receipt Date: 20250813
  Transmission Date: 20251020
  Serious: Yes (Death)
  Sender: AMGEN
  Company Number: EU-AMGEN-FRASP2025157257

PATIENT

DRUGS (3)
  1. BEVACIZUMAB [Suspect]
     Active Substance: BEVACIZUMAB
     Indication: Hepatocellular carcinoma
     Dosage: UNK UNK, Q3WK
     Route: 065
  2. ATEZOLIZUMAB [Concomitant]
     Active Substance: ATEZOLIZUMAB
     Indication: Hepatocellular carcinoma
     Dosage: UNK UNK, Q3WK
     Route: 065
  3. NELVUTAMIG [Concomitant]
     Active Substance: NELVUTAMIG
     Indication: Hepatocellular carcinoma
     Route: 065

REACTIONS (2)
  - Sepsis [Fatal]
  - Hepatitis [Fatal]
